FAERS Safety Report 6091462-5 (Version None)
Quarter: 2009Q1

REPORT INFORMATION
  Report Type: 
  Country: None (occurrence: None)
  Receive Date: 20090219
  Receipt Date: 20090219
  Transmission Date: 20090719
  Serious: Yes (Life-Threatening)
  Sender: FDA-Public Use
  Company Number: None

PATIENT
  Age: 13 Year
  Sex: Male
  Weight: 47 kg

DRUGS (2)
  1. VORINOSTAT [Suspect]
     Indication: HODGKIN'S DISEASE REFRACTORY
     Dosage: 300 MG ONCE DAILY ORAL
     Route: 048
     Dates: start: 20090114, end: 20090128
  2. ASPIRIN [Concomitant]

REACTIONS (2)
  - B-CELL LYMPHOMA [None]
  - EPSTEIN-BARR VIRUS ASSOCIATED LYMPHOPROLIFERATIVE DISORDER [None]
